FAERS Safety Report 5345605-9 (Version None)
Quarter: 2007Q2

REPORT INFORMATION
  Report Type: 
  Country: None (occurrence: None)
  Receive Date: 20070605
  Receipt Date: 20060612
  Transmission Date: 20071010
  Serious: No
  Sender: FDA-Public Use
  Company Number: US-ASTRAZENECA-2006UW12939

PATIENT
  Age: 46 Year
  Sex: Female
  Weight: 77.3 kg

DRUGS (1)
  1. PRILOSEC [Suspect]
     Route: 048
     Dates: start: 20060529, end: 20060611

REACTIONS (1)
  - GLOSSODYNIA [None]
